FAERS Safety Report 5585173-X (Version None)
Quarter: 2008Q1

REPORT INFORMATION
  Report Type: 
  Country: None (occurrence: None)
  Receive Date: 20080108
  Receipt Date: 20080108
  Transmission Date: 20080703
  Serious: No
  Sender: FDA-Public Use
  Company Number: None

PATIENT
  Age: 53 Year
  Sex: Female

DRUGS (13)
  1. LEVAQUIN [Suspect]
     Dates: start: 20060718, end: 20060725
  2. KEFLEX [Suspect]
     Dates: start: 20060524, end: 20060602
  3. INDERAL [Concomitant]
  4. KLONOPIN [Concomitant]
  5. LAMICTAL [Concomitant]
  6. WELLBUTRIN [Concomitant]
  7. DIOVAN [Concomitant]
  8. CALTRATE [Concomitant]
  9. VITAMIN D [Concomitant]
  10. ESTRATEST [Concomitant]
  11. VITAMIN CAP [Concomitant]
  12. SINGULAIR [Concomitant]
  13. CODEINE [Concomitant]

REACTIONS (9)
  - BLOOD AMYLASE INCREASED [None]
  - HEPATITIS CHOLESTATIC [None]
  - LIVER INJURY [None]
  - ORAL DISORDER [None]
  - ORAL HERPES [None]
  - PURULENCE [None]
  - SKIN EXFOLIATION [None]
  - URINARY TRACT INFECTION [None]
  - VAGINAL DISCHARGE [None]
